FAERS Safety Report 21971262 (Version 3)
Quarter: 2023Q2

REPORT INFORMATION
  Report Type: Spontaneous
  Country: DE (occurrence: DE)
  Receive Date: 20230209
  Receipt Date: 20230524
  Transmission Date: 20230721
  Serious: Yes (Hospitalization, Other)
  Sender: FDA-Public Use
  Company Number: DE-002147023-NVSC2022DE264362

PATIENT
  Age: 16 Year

DRUGS (35)
  1. ARIPIPRAZOLE [Interacting]
     Active Substance: ARIPIPRAZOLE
     Indication: Impulse-control disorder
     Dosage: UNK
     Route: 065
  2. ARIPIPRAZOLE [Interacting]
     Active Substance: ARIPIPRAZOLE
     Indication: Antipsychotic therapy
  3. ARIPIPRAZOLE [Interacting]
     Active Substance: ARIPIPRAZOLE
     Indication: Intellectual disability
  4. ARIPIPRAZOLE [Interacting]
     Active Substance: ARIPIPRAZOLE
     Indication: Stereotypy
  5. ARIPIPRAZOLE [Interacting]
     Active Substance: ARIPIPRAZOLE
     Indication: Autism spectrum disorder
  6. ARIPIPRAZOLE [Interacting]
     Active Substance: ARIPIPRAZOLE
     Indication: Microcephaly
  7. ARIPIPRAZOLE [Interacting]
     Active Substance: ARIPIPRAZOLE
     Indication: Accommodation disorder
  8. MELATONIN [Interacting]
     Active Substance: MELATONIN
     Indication: Autism spectrum disorder
     Dosage: UNK
     Route: 065
  9. MELATONIN [Interacting]
     Active Substance: MELATONIN
     Indication: Antipsychotic therapy
  10. MELATONIN [Interacting]
     Active Substance: MELATONIN
     Indication: Accommodation disorder
  11. MELATONIN [Interacting]
     Active Substance: MELATONIN
     Indication: Intellectual disability
  12. MELATONIN [Interacting]
     Active Substance: MELATONIN
     Indication: Microcephaly
  13. QUETIAPINE [Suspect]
     Active Substance: QUETIAPINE
     Indication: Autism spectrum disorder
     Dosage: UNK
     Route: 065
  14. QUETIAPINE [Suspect]
     Active Substance: QUETIAPINE
     Indication: Accommodation disorder
  15. QUETIAPINE [Suspect]
     Active Substance: QUETIAPINE
     Indication: Intellectual disability
  16. QUETIAPINE [Suspect]
     Active Substance: QUETIAPINE
     Indication: Microcephaly
  17. RISPERIDONE [Interacting]
     Active Substance: RISPERIDONE
     Indication: Autism spectrum disorder
     Dosage: UNK
     Route: 065
  18. RISPERIDONE [Interacting]
     Active Substance: RISPERIDONE
     Indication: Antipsychotic therapy
  19. RISPERIDONE [Interacting]
     Active Substance: RISPERIDONE
     Indication: Intellectual disability
  20. LORAZEPAM [Interacting]
     Active Substance: LORAZEPAM
     Indication: Autism spectrum disorder
     Dosage: UNK
     Route: 065
  21. LORAZEPAM [Interacting]
     Active Substance: LORAZEPAM
     Indication: Antipsychotic therapy
  22. LORAZEPAM [Interacting]
     Active Substance: LORAZEPAM
     Indication: Intellectual disability
  23. LORAZEPAM [Interacting]
     Active Substance: LORAZEPAM
     Indication: Microcephaly
  24. LORAZEPAM [Interacting]
     Active Substance: LORAZEPAM
     Indication: Accommodation disorder
  25. MELPERONE [Interacting]
     Active Substance: MELPERONE
     Indication: Antipsychotic therapy
     Dosage: UNK
     Route: 065
  26. MELPERONE [Interacting]
     Active Substance: MELPERONE
     Indication: Stereotypy
  27. MELPERONE [Interacting]
     Active Substance: MELPERONE
     Indication: Autism spectrum disorder
  28. MELPERONE [Interacting]
     Active Substance: MELPERONE
     Indication: Impulse-control disorder
  29. MELPERONE [Interacting]
     Active Substance: MELPERONE
     Indication: Intellectual disability
  30. MELPERONE [Interacting]
     Active Substance: MELPERONE
     Indication: Stereotypy
  31. MELPERONE [Interacting]
     Active Substance: MELPERONE
     Indication: Accommodation disorder
  32. PIPAMPERONE [Interacting]
     Active Substance: PIPAMPERONE
     Indication: Antipsychotic therapy
     Dosage: UNK
     Route: 065
  33. PIPAMPERONE [Interacting]
     Active Substance: PIPAMPERONE
     Indication: Stereotypy
  34. PIPAMPERONE [Interacting]
     Active Substance: PIPAMPERONE
     Indication: Impulse-control disorder
  35. PIPAMPERONE [Interacting]
     Active Substance: PIPAMPERONE
     Indication: Intellectual disability

REACTIONS (8)
  - Electrocardiogram QT prolonged [Unknown]
  - Salivary hypersecretion [Unknown]
  - Drug interaction [Unknown]
  - Extrapyramidal disorder [Unknown]
  - Off label use [Unknown]
  - Medication error [Unknown]
  - Product use issue [Unknown]
  - Product use in unapproved indication [Unknown]
